FAERS Safety Report 7235816-X (Version None)
Quarter: 2011Q1

REPORT INFORMATION
  Report Type: 
  Country: None (occurrence: None)
  Receive Date: 20110120
  Receipt Date: 20110111
  Transmission Date: 20110831
  Serious: Yes (Hospitalization)
  Sender: FDA-Public Use
  Company Number: US-SANOFI-AVENTIS-2011SA002386

PATIENT
  Age: 56 Year
  Sex: Male

DRUGS (7)
  1. PLAVIX [Suspect]
     Indication: STENT PLACEMENT
     Route: 048
     Dates: start: 20050101, end: 20110111
  2. INSULIN [Concomitant]
  3. BETA BLOCKING AGENTS [Concomitant]
  4. METFORMIN [Concomitant]
  5. ANALGESICS [Concomitant]
  6. ANTIHYPERTENSIVES [Concomitant]
  7. ASPIRIN [Suspect]
     Route: 065
     Dates: start: 20050101

REACTIONS (2)
  - THROMBOTIC THROMBOCYTOPENIC PURPURA [None]
  - CHEST PAIN [None]
